FAERS Safety Report 7000415-1 (Version None)
Quarter: 2010Q3

REPORT INFORMATION
  Report Type: 
  Country: None (occurrence: None)
  Receive Date: 20100920
  Receipt Date: 20100719
  Transmission Date: 20110219
  Serious: Yes (Hospitalization)
  Sender: FDA-Public Use
  Company Number: US-ASTRAZENECA-2010SE33662

PATIENT
  Age: 14923 Day
  Sex: Female

DRUGS (10)
  1. SEROQUEL [Suspect]
     Route: 048
  2. APIXABAN CODE NOT BROKEN [Suspect]
     Indication: EMBOLISM ARTERIAL
     Route: 048
  3. CYMBALTA [Concomitant]
  4. GABAPENTIN [Concomitant]
  5. OXYCODONE HCL [Concomitant]
  6. AVONEX [Concomitant]
  7. BACLOFEN [Concomitant]
  8. LORAZEPAM [Concomitant]
  9. FOLIC ACID [Concomitant]
  10. MARIJUANA [Concomitant]

REACTIONS (1)
  - AKATHISIA [None]
